FAERS Safety Report 5898407-9 (Version None)
Quarter: 2008Q3

REPORT INFORMATION
  Report Type: 
  Country: None (occurrence: None)
  Receive Date: 20080925
  Receipt Date: 20071022
  Transmission Date: 20090109
  Serious: No
  Sender: FDA-Public Use
  Company Number: A0688959A

PATIENT
  Age: 64 Year
  Sex: Male

DRUGS (5)
  1. WELLBUTRIN XL [Suspect]
     Dosage: 150MG ALTERNATE DAYS
     Route: 048
     Dates: start: 20071012
  2. LEXAPRO [Concomitant]
  3. SIMVASTATIN [Concomitant]
  4. PROTONIX [Concomitant]
  5. STOOL SOFTENER [Concomitant]

REACTIONS (1)
  - MUSCULOSKELETAL PAIN [None]
